FAERS Safety Report 6412578-7 (Version None)
Quarter: 2009Q4

REPORT INFORMATION
  Report Type: 
  Country: None (occurrence: None)
  Receive Date: 20091023
  Receipt Date: 20091009
  Transmission Date: 20100525
  Serious: Yes (Other)
  Sender: FDA-Public Use
  Company Number: PHHY2009CA44197

PATIENT
  Sex: Male

DRUGS (1)
  1. DIOVAN [Suspect]
     Dosage: 1 TABLET (80 MG) DAILY
     Route: 048

REACTIONS (4)
  - HEART RATE DECREASED [None]
  - IMPLANTABLE DEFIBRILLATOR INSERTION [None]
  - RETINAL OPERATION [None]
  - VIRAL INFECTION [None]
